FAERS Safety Report 17564798 (Version 1)
Quarter: 2020Q1

REPORT INFORMATION
  Report Type: Spontaneous
  Country: US (occurrence: US)
  Receive Date: 20200320
  Receipt Date: 20200320
  Transmission Date: 20200409
  Serious: No
  Sender: FDA-Public Use
  Company Number: US-ELI_LILLY_AND_COMPANY-US202003009137

PATIENT
  Sex: Female

DRUGS (7)
  1. HUMALOG [Suspect]
     Active Substance: INSULIN LISPRO
     Indication: TYPE 2 DIABETES MELLITUS
     Dosage: UNK UNK, UNKNOWN (ON SLIDING SCALE)
     Route: 058
     Dates: start: 202002
  2. TRULICITY [Suspect]
     Active Substance: DULAGLUTIDE
     Indication: TYPE 2 DIABETES MELLITUS
     Dosage: 1.5 MG, UNKNOWN
     Route: 058
  3. HUMALOG [Suspect]
     Active Substance: INSULIN LISPRO
     Dosage: UNK UNK, UNKNOWN (ON SLIDING SCALE)
     Route: 058
     Dates: start: 202002
  4. HUMALOG [Suspect]
     Active Substance: INSULIN LISPRO
     Indication: TYPE 2 DIABETES MELLITUS
     Dosage: UNK UNK, UNKNOWN (ON SLIDING SCALE)
     Route: 058
     Dates: start: 202002
  5. TRESIBA [Concomitant]
     Active Substance: INSULIN DEGLUDEC
     Indication: TYPE 2 DIABETES MELLITUS
  6. TRULICITY [Concomitant]
     Active Substance: DULAGLUTIDE
     Indication: TYPE 2 DIABETES MELLITUS
     Dosage: 0.75 MG, UNKNOWN
     Route: 065
  7. HUMALOG [Suspect]
     Active Substance: INSULIN LISPRO
     Dosage: UNK UNK, UNKNOWN (ON SLIDING SCALE)
     Route: 058
     Dates: start: 202002

REACTIONS (6)
  - Malaise [Unknown]
  - Vomiting [Recovered/Resolved]
  - Nausea [Recovered/Resolved]
  - Drug ineffective [Not Recovered/Not Resolved]
  - Blood glucose increased [Not Recovered/Not Resolved]
  - Diarrhoea [Recovered/Resolved]
